FAERS Safety Report 4754450-4 (Version None)
Quarter: 2005Q3

REPORT INFORMATION
  Report Type: 
  Country: None (occurrence: None)
  Receive Date: 20050825
  Receipt Date: 20050825
  Transmission Date: 20060218
  Serious: Yes (Hospitalization)
  Sender: FDA-Public Use
  Company Number: None

PATIENT
  Sex: Female
  Weight: 85.7298 kg

DRUGS (11)
  1. GEMCITABINE [Suspect]
     Indication: NON-SMALL CELL LUNG CANCER
     Dosage: 1900 MG   DAYS 1.8 Q 3 WKS   IV
     Route: 042
     Dates: start: 20050816, end: 20050816
  2. CARBOPLATIN [Suspect]
     Indication: NON-SMALL CELL LUNG CANCER
     Dosage: 530 MG   DAY 1 Q 3 WKS   IV
     Route: 042
     Dates: start: 20050816, end: 20050816
  3. MS CONTIN [Concomitant]
  4. MORPHINE SULFATE [Concomitant]
  5. FIBER STOOL SOFTNER [Concomitant]
  6. MIRALAX [Concomitant]
  7. HEPARIN [Concomitant]
  8. NYSTATIN [Concomitant]
  9. PROTONIX [Concomitant]
  10. LEXAPRO [Concomitant]
  11. TEMAZEPAM [Concomitant]

REACTIONS (12)
  - ASTHENIA [None]
  - COUGH [None]
  - DEHYDRATION [None]
  - DYSPNOEA [None]
  - DYSPNOEA EXERTIONAL [None]
  - FATIGUE [None]
  - HYPOXIA [None]
  - LUNG INFILTRATION [None]
  - PARALYSIS [None]
  - PYREXIA [None]
  - REFUSAL OF TREATMENT BY PATIENT [None]
  - SPINAL CORD COMPRESSION [None]
